FAERS Safety Report 4885846-8 (Version None)
Quarter: 2006Q1

REPORT INFORMATION
  Report Type: 
  Country: None (occurrence: None)
  Receive Date: 20060120
  Receipt Date: 20060112
  Transmission Date: 20060701
  Serious: Yes (Hospitalization)
  Sender: FDA-Public Use
  Company Number: US-JNJFOC-20051104809

PATIENT
  Sex: Female
  Weight: 71.67 kg

DRUGS (8)
  1. EXTRA STRENGTH TYLENOL [Suspect]
  2. EXTRA STRENGTH TYLENOL [Suspect]
     Indication: HEADACHE
     Dosage: 7800-12000 MG ONCE, ORAL
  3. TIAGABINE HCL [Concomitant]
  4. C6671/3030/AX/US PLACEBO [Concomitant]
  5. ORTHO NOVUM 2/50 21 TAB [Concomitant]
  6. VITAMIN [Concomitant]
  7. DIUREX [Concomitant]
  8. DIUREX [Concomitant]

REACTIONS (3)
  - ASTHENIA [None]
  - HEADACHE [None]
  - INTENTIONAL OVERDOSE [None]
